FAERS Safety Report 9656925 (Version 1)
Quarter: 2013Q4

REPORT INFORMATION
  Report Type: Spontaneous
  Country: US (occurrence: None)
  Receive Date: 20131029
  Receipt Date: 20131029
  Transmission Date: 20140711
  Serious: No
  Sender: FDA-Public Use
  Company Number: None

PATIENT
  Age: 60 Year
  Sex: Male

DRUGS (1)
  1. SUTENT [Suspect]
     Dosage: 7 DS, 7 DAYS OFF
     Route: 048
     Dates: start: 20121214

REACTIONS (3)
  - Blood pressure increased [None]
  - Therapy cessation [None]
  - Malaise [None]
